FAERS Safety Report 13425819 (Version 2)
Quarter: 2017Q3

REPORT INFORMATION
  Report Type: Spontaneous
  Country: US (occurrence: US)
  Receive Date: 20170411
  Receipt Date: 20170922
  Transmission Date: 20171127
  Serious: No
  Sender: FDA-Public Use
  Company Number: US-JNJFOC-20170216145

PATIENT
  Age: 87 Year
  Sex: Female
  Weight: 50.35 kg

DRUGS (3)
  1. FENTANYL TRANSDERMAL SYSTEM [Suspect]
     Active Substance: FENTANYL
     Indication: BACK PAIN
     Route: 062
     Dates: start: 20090420, end: 200904
  2. FENTANYL TRANSDERMAL SYSTEM [Suspect]
     Active Substance: FENTANYL
     Indication: BACK PAIN
     Dosage: TWO 12.5 MCG PATCHES
     Route: 062
     Dates: start: 20090427
  3. FENTANYL TRANSDERMAL SYSTEM [Suspect]
     Active Substance: FENTANYL
     Indication: BACK PAIN
     Route: 062
     Dates: start: 20090503

REACTIONS (2)
  - Wrong technique in product usage process [Unknown]
  - Product packaging issue [Unknown]

NARRATIVE: CASE EVENT DATE: 20090503
